FAERS Safety Report 5527650-3 (Version None)
Quarter: 2007Q4

REPORT INFORMATION
  Report Type: 
  Country: None (occurrence: None)
  Receive Date: 20071123
  Receipt Date: 20071108
  Transmission Date: 20080405
  Serious: Yes (Hospitalization)
  Sender: FDA-Public Use
  Company Number: 2007BI020667

PATIENT
  Age: 69 Year
  Sex: Male

DRUGS (2)
  1. ZEVALIN [Suspect]
     Indication: NON-HODGKIN'S LYMPHOMA REFRACTORY
     Dosage: 0.4 MCI/KG; 1X; IV
     Route: 042
     Dates: start: 20060707, end: 20060707
  2. RITUXIMAB [Concomitant]

REACTIONS (1)
  - PROSTATE CANCER [None]
